FAERS Safety Report 9134905 (Version 2)
Quarter: 2013Q4

REPORT INFORMATION
  Report Type: Report from Study
  Country: BR (occurrence: BR)
  Receive Date: 20130304
  Receipt Date: 20131007
  Transmission Date: 20140711
  Serious: Yes (Hospitalization, Other)
  Sender: FDA-Public Use
  Company Number: BR-US-EMD SERONO, INC.-7196513

PATIENT
  Age: 47 Year
  Sex: Male

DRUGS (7)
  1. REBIF [Suspect]
     Indication: RELAPSING-REMITTING MULTIPLE SCLEROSIS
     Route: 058
     Dates: start: 20110414
  2. SIMVASTATIN [Concomitant]
     Indication: PRODUCT USED FOR UNKNOWN INDICATION
  3. OMEPRAZOLE [Concomitant]
     Indication: PROPHYLAXIS
  4. SERTRALINE [Concomitant]
     Indication: BLOOD CHOLESTEROL INCREASED
  5. SERTRALINE [Concomitant]
     Indication: BLOOD TRIGLYCERIDES INCREASED
  6. ASPIRIN                            /00002701/ [Concomitant]
     Indication: THROMBOSIS
  7. ASPIRIN                            /00002701/ [Concomitant]
     Indication: CARDIOVASCULAR DISORDER

REACTIONS (3)
  - Multiple sclerosis relapse [Recovered/Resolved]
  - Bipolar disorder [Unknown]
  - Thrombocytopenia [Unknown]
